FAERS Safety Report 15407710 (Version 1)
Quarter: 2018Q3

REPORT INFORMATION
  Report Type: Other
  Country: CN (occurrence: CN)
  Receive Date: 20180920
  Receipt Date: 20180920
  Transmission Date: 20181010
  Serious: Yes (Hospitalization)
  Sender: FDA-Public Use
  Company Number: CN-ACTELION-A-CH2018-178891

PATIENT
  Age: 18 Month
  Sex: Male
  Weight: 6 kg

DRUGS (2)
  1. OXYGEN. [Concomitant]
     Active Substance: OXYGEN
     Route: 055
  2. BOSENTAN. [Suspect]
     Active Substance: BOSENTAN
     Indication: PULMONARY ARTERIAL HYPERTENSION
     Dosage: 2 MG/KG, BID
     Route: 048

REACTIONS (5)
  - Cough [Unknown]
  - Wheezing [Unknown]
  - Drug ineffective [Unknown]
  - Pneumonia [Unknown]
  - Surgery [Unknown]

NARRATIVE: CASE EVENT DATE: 201409
